FAERS Safety Report 9355705 (Version 2)
Quarter: 2013Q3

REPORT INFORMATION
  Report Type: Report from Study
  Country: US (occurrence: US)
  Receive Date: 20130619
  Receipt Date: 20130725
  Transmission Date: 20140515
  Serious: Yes (Hospitalization)
  Sender: FDA-Public Use
  Company Number: US-JNJFOC-20130607992

PATIENT
  Age: 18 Year
  Sex: Female
  Weight: 54.43 kg

DRUGS (5)
  1. REMICADE [Suspect]
     Indication: COLITIS ULCERATIVE
     Route: 042
     Dates: start: 20130518, end: 20130518
  2. REMICADE [Suspect]
     Indication: COLITIS ULCERATIVE
     Route: 042
     Dates: start: 20130421, end: 20130518
  3. REMICADE [Suspect]
     Indication: COLITIS ULCERATIVE
     Route: 042
     Dates: start: 201108, end: 201304
  4. ASACOL [Suspect]
     Indication: COLITIS ULCERATIVE
     Route: 065
     Dates: end: 201305
  5. BUDESONIDE [Suspect]
     Indication: COLITIS ULCERATIVE
     Route: 048
     Dates: end: 201305

REACTIONS (4)
  - Colitis ulcerative [Recovered/Resolved]
  - Drug ineffective [Not Recovered/Not Resolved]
  - Abnormal loss of weight [Unknown]
  - Drug specific antibody present [Recovered/Resolved]
